FAERS Safety Report 17066950 (Version 3)
Quarter: 2020Q1

REPORT INFORMATION
  Report Type: Spontaneous
  Country: SI (occurrence: SI)
  Receive Date: 20191122
  Receipt Date: 20200307
  Transmission Date: 20200409
  Serious: Yes (Death, Other)
  Sender: FDA-Public Use
  Company Number: SI-TAKEDA-2019TUS067453

PATIENT
  Age: 58 Year
  Sex: Female

DRUGS (19)
  1. VALTREX [Concomitant]
     Active Substance: VALACYCLOVIR HYDROCHLORIDE
     Indication: PRODUCT USED FOR UNKNOWN INDICATION
     Dosage: UNK
     Route: 065
  2. DARZALEX [Suspect]
     Active Substance: DARATUMUMAB
     Dosage: 1200 MILLIGRAM
     Route: 065
     Dates: start: 20190527
  3. DARZALEX [Suspect]
     Active Substance: DARATUMUMAB
     Dosage: 1200 MILLIGRAM
     Route: 065
     Dates: start: 20190617
  4. METAMIZOLE SODIUM [Concomitant]
     Active Substance: METAMIZOLE SODIUM
     Indication: PRODUCT USED FOR UNKNOWN INDICATION
     Dosage: UNK
     Route: 065
  5. DARZALEX [Suspect]
     Active Substance: DARATUMUMAB
     Indication: PLASMA CELL MYELOMA
     Dosage: 1200 MILLIGRAM
     Route: 065
     Dates: start: 20190419
  6. DEXAMETHASONE. [Suspect]
     Active Substance: DEXAMETHASONE
     Indication: PLASMA CELL MYELOMA
     Dosage: 40 MILLIGRAM
     Route: 065
     Dates: start: 201904, end: 201907
  7. DARZALEX [Suspect]
     Active Substance: DARATUMUMAB
     Dosage: 1200 MILLIGRAM
     Route: 065
     Dates: start: 20190603
  8. DORETA [Concomitant]
     Active Substance: ACETAMINOPHEN\TRAMADOL HYDROCHLORIDE
     Indication: PRODUCT USED FOR UNKNOWN INDICATION
     Dosage: UNK
     Route: 065
  9. CONCOR [Concomitant]
     Active Substance: BISOPROLOL FUMARATE
     Indication: PRODUCT USED FOR UNKNOWN INDICATION
     Dosage: UNK
     Route: 065
  10. DARZALEX [Suspect]
     Active Substance: DARATUMUMAB
     Dosage: 1200 MILLIGRAM
     Route: 065
     Dates: start: 20190506
  11. DARZALEX [Suspect]
     Active Substance: DARATUMUMAB
     Dosage: 1200 MILLIGRAM
     Route: 065
     Dates: start: 20190610
  12. DARZALEX [Suspect]
     Active Substance: DARATUMUMAB
     Dosage: 1200 MILLIGRAM
     Route: 065
     Dates: start: 20190423
  13. DARZALEX [Suspect]
     Active Substance: DARATUMUMAB
     Dosage: 1200 MILLIGRAM
     Route: 065
     Dates: start: 20190429
  14. ZOLEDRONIC ACID. [Concomitant]
     Active Substance: ZOLEDRONIC ACID
     Indication: PRODUCT USED FOR UNKNOWN INDICATION
     Dosage: UNK UNK, MONTHLY
     Route: 042
  15. BORTEZOMIB. [Suspect]
     Active Substance: BORTEZOMIB
     Indication: PLASMA CELL MYELOMA
     Dosage: 2.2 MILLIGRAM
     Route: 058
     Dates: start: 201904, end: 201907
  16. DARZALEX [Suspect]
     Active Substance: DARATUMUMAB
     Dosage: 1200 MILLIGRAM
     Route: 065
     Dates: start: 20190513
  17. DARZALEX [Suspect]
     Active Substance: DARATUMUMAB
     Dosage: 1200 MILLIGRAM
     Route: 065
     Dates: start: 20190624, end: 20190624
  18. ERYTHROPOIETIN [Concomitant]
     Active Substance: ERYTHROPOIETIN
     Indication: PRODUCT USED FOR UNKNOWN INDICATION
     Dosage: UNK UNK, 1/WEEK
     Route: 065
  19. NOLPAZA CONTROL [Concomitant]
     Indication: PRODUCT USED FOR UNKNOWN INDICATION
     Dosage: UNK
     Route: 065

REACTIONS (1)
  - Plasma cell myeloma [Fatal]

NARRATIVE: CASE EVENT DATE: 201904
